FAERS Safety Report 15340900 (Version 1)
Quarter: 2018Q3

REPORT INFORMATION
  Report Type: Spontaneous
  Country: US (occurrence: US)
  Receive Date: 20180831
  Receipt Date: 20180831
  Transmission Date: 20181010
  Serious: No
  Sender: FDA-Public Use
  Company Number: US-SA-2018SA242109

PATIENT
  Age: 25 Year
  Sex: Female

DRUGS (1)
  1. DUPIXENT [Suspect]
     Active Substance: DUPILUMAB
     Route: 058

REACTIONS (1)
  - Device defective [Unknown]

NARRATIVE: CASE EVENT DATE: 20180823
